FAERS Safety Report 9601063 (Version 2)
Quarter: 2013Q4

REPORT INFORMATION
  Report Type: Spontaneous
  Country: US (occurrence: US)
  Receive Date: 20131004
  Receipt Date: 20131004
  Transmission Date: 20140711
  Serious: No
  Sender: FDA-Public Use
  Company Number: US-AMGEN-USASP2013032799

PATIENT
  Age: 52 Year
  Sex: Female
  Weight: 155 kg

DRUGS (8)
  1. ENBREL [Suspect]
     Indication: PSORIATIC ARTHROPATHY
     Dosage: 50 MG, TWICE WEEKLY
     Route: 058
     Dates: start: 20121206
  2. ENBREL [Suspect]
     Indication: PSORIASIS
  3. FOSINOPRIL SODIUM [Concomitant]
     Indication: HYPERTENSION
     Dosage: 10 MG, BID
     Route: 048
  4. PREMARIN [Concomitant]
     Indication: MENOPAUSE
     Dosage: 0.9 MG, QD
     Route: 048
  5. LANSOPRAZOL [Concomitant]
     Indication: GASTROOESOPHAGEAL REFLUX DISEASE
     Dosage: 30 MG, QD
     Route: 048
  6. CELEBREX [Concomitant]
     Indication: INFLAMMATION
     Dosage: 200 MG, QD
     Route: 048
  7. TRAMADOL HCL [Concomitant]
     Indication: PAIN
     Dosage: 50 MG, UNK 4/DAY
     Route: 048
  8. ALLEGRA [Concomitant]
     Indication: HYPERSENSITIVITY
     Dosage: 180 MG, QD
     Route: 048

REACTIONS (5)
  - Skin plaque [Recovering/Resolving]
  - Grip strength decreased [Recovering/Resolving]
  - Pain in extremity [Not Recovered/Not Resolved]
  - Pruritus [Recovering/Resolving]
  - Skin exfoliation [Recovering/Resolving]
